FAERS Safety Report 7659322-3 (Version None)
Quarter: 2011Q3

REPORT INFORMATION
  Report Type: 
  Country: None (occurrence: None)
  Receive Date: 20110805
  Receipt Date: 20110728
  Transmission Date: 20111222
  Serious: Yes (Other)
  Sender: FDA-Public Use
  Company Number: JP-ROCHE-794339

PATIENT
  Age: 66 Year
  Sex: Female

DRUGS (2)
  1. TOPOTECAN [Concomitant]
     Dosage: NOTE: DOSAGE IS UNCERTAIN.
     Route: 041
     Dates: start: 20110623
  2. HERCEPTIN [Suspect]
     Indication: BREAST CANCER METASTATIC
     Dosage: NOTE: IT ADMINISTERS IT 90 TIMES OR MORE.
     Route: 041

REACTIONS (2)
  - OEDEMA PERIPHERAL [None]
  - GAIT DISTURBANCE [None]
